FAERS Safety Report 4612677-6 (Version None)
Quarter: 2005Q1

REPORT INFORMATION
  Report Type: 
  Country: None (occurrence: None)
  Receive Date: 20050318
  Receipt Date: 20020614
  Transmission Date: 20050727
  Serious: Yes (Other)
  Sender: FDA-Public Use
  Company Number: PHBS2002JP07133

PATIENT
  Age: 75 Year
  Sex: Male

DRUGS (7)
  1. DIOVAN [Suspect]
     Indication: HYPERTENSION
     Dosage: 80 MG, QD
     Route: 048
     Dates: start: 20010215, end: 20020527
  2. MUCOSOLVAN [Concomitant]
     Dates: start: 20010526, end: 20020524
  3. FLUITRAN [Concomitant]
     Dates: start: 19991225
  4. ZANTAC [Concomitant]
     Dates: start: 20011009, end: 20020524
  5. MYONAL [Concomitant]
     Dates: start: 20010725, end: 20020524
  6. CARDENALIN [Concomitant]
     Dates: start: 20010626, end: 20020510
  7. NORVASC [Concomitant]
     Dosage: UNK, UNK
     Dates: start: 20011218

REACTIONS (11)
  - ALANINE AMINOTRANSFERASE INCREASED [None]
  - ASPARTATE AMINOTRANSFERASE INCREASED [None]
  - BLOOD CREATINE PHOSPHOKINASE INCREASED [None]
  - BLOOD CREATININE INCREASED [None]
  - FATIGUE [None]
  - GAMMA-GLUTAMYLTRANSFERASE INCREASED [None]
  - MUSCLE SPASMS [None]
  - MUSCULAR WEAKNESS [None]
  - MYALGIA [None]
  - NAUSEA [None]
  - RHABDOMYOLYSIS [None]
